FAERS Safety Report 18418408 (Version 2)
Quarter: 2020Q4

REPORT INFORMATION
  Report Type: Spontaneous
  Country: US (occurrence: US)
  Receive Date: 20201023
  Receipt Date: 20201202
  Transmission Date: 20210114
  Serious: Yes (Hospitalization, Other)
  Sender: FDA-Public Use
  Company Number: US-009507513-2003USA000414

PATIENT
  Sex: Male
  Weight: 95.76 kg

DRUGS (2)
  1. STERILE DILUENT (WATER) [Suspect]
     Active Substance: WATER
     Dosage: UNK, IN LEFT DELTOID
     Route: 058
     Dates: start: 20141113
  2. ZOSTAVAX [Suspect]
     Active Substance: VARICELLA-ZOSTER VIRUS STRAIN OKA/MERCK LIVE ANTIGEN
     Indication: PROPHYLAXIS
     Route: 058
     Dates: start: 20141113

REACTIONS (20)
  - Trismus [Unknown]
  - Metastases to lymph nodes [Unknown]
  - Joint ankylosis [Unknown]
  - Hypophagia [Unknown]
  - Cataract [Recovered/Resolved]
  - Temporomandibular joint syndrome [Unknown]
  - Pharyngeal stenosis [Unknown]
  - Corrective lens user [Unknown]
  - Malnutrition [Unknown]
  - Facial nerve disorder [Unknown]
  - Cataract nuclear [Recovered/Resolved]
  - Otitis externa [Unknown]
  - Body mass index abnormal [Unknown]
  - Ophthalmic herpes simplex [Recovering/Resolving]
  - Parotitis [Unknown]
  - Ophthalmic herpes simplex [Unknown]
  - Tooth loss [Unknown]
  - Weight decreased [Unknown]
  - Oropharyngeal squamous cell carcinoma [Unknown]
  - Eye operation [Unknown]

NARRATIVE: CASE EVENT DATE: 20150324
